FAERS Safety Report 8264736-7 (Version None)
Quarter: 2012Q2

REPORT INFORMATION
  Report Type: 
  Country: None (occurrence: None)
  Receive Date: 20120406
  Receipt Date: 20120330
  Transmission Date: 20120825
  Serious: Yes (Death)
  Sender: FDA-Public Use
  Company Number: JP-BRISTOL-MYERS SQUIBB COMPANY-16451528

PATIENT
  Age: 56 Year
  Sex: Female

DRUGS (6)
  1. NEUROTROPIN [Suspect]
     Dosage: INJECTION
     Route: 030
  2. PAROXETINE [Concomitant]
     Dosage: TABLET
  3. AMOXAPINE [Concomitant]
  4. BENZODIAZEPINE [Concomitant]
  5. ABILIFY [Suspect]
     Route: 048
  6. CHLORPROMAZINE [Concomitant]

REACTIONS (2)
  - SEROTONIN SYNDROME [None]
  - MULTI-ORGAN FAILURE [None]
